FAERS Safety Report 6315147-2 (Version None)
Quarter: 2009Q3

REPORT INFORMATION
  Report Type: 
  Country: None (occurrence: None)
  Receive Date: 20090818
  Receipt Date: 20090818
  Transmission Date: 20100115
  Serious: Yes (Other)
  Sender: FDA-Public Use
  Company Number: None

PATIENT
  Age: 48 Year
  Sex: Female
  Weight: 66.6788 kg

DRUGS (1)
  1. LIOTHYRONINE SODIUM [Suspect]
     Indication: HYPOTHYROIDISM
     Dosage: 1 TABLET DAILY PO
     Route: 048
     Dates: start: 20090625, end: 20090817

REACTIONS (6)
  - BREAST TENDERNESS [None]
  - DIARRHOEA [None]
  - MUSCLE SPASMS [None]
  - POSTMENOPAUSAL HAEMORRHAGE [None]
  - PRODUCT SUBSTITUTION ISSUE [None]
  - WEIGHT INCREASED [None]
